FAERS Safety Report 4751449-9 (Version None)
Quarter: 2005Q3

REPORT INFORMATION
  Report Type: 
  Country: None (occurrence: None)
  Receive Date: 20050824
  Receipt Date: 20050721
  Transmission Date: 20060218
  Serious: Yes (Other)
  Sender: FDA-Public Use
  Company Number: GR-BRISTOL-MYERS SQUIBB COMPANY-13045869

PATIENT
  Age: 63 Year
  Sex: Female

DRUGS (2)
  1. IXABEPILONE [Suspect]
     Indication: BREAST CANCER
     Dosage: THERAPY INITIATED 13-JAN-2005.(PER PROTOCOL GIVEN DAY 1 OVER 3HOURS EVERY 3 WEEKS)-LAST ON 13-JUL-05
     Route: 042
     Dates: start: 20050713, end: 20050713
  2. CAPECITABINE [Suspect]
     Indication: BREAST CANCER
     Dosage: INITIATED 13-JAN-05.(PER PROTOCOL GIVEN DAYS 1-14 EVERY 3 WEEKS)-LAST GIVEN 06-JUL-05-CYCLE 8
     Route: 048
     Dates: start: 20050706, end: 20050706

REACTIONS (1)
  - SYSTEMIC LUPUS ERYTHEMATOSUS [None]
